FAERS Safety Report 4847157-6 (Version None)
Quarter: 2005Q4

REPORT INFORMATION
  Report Type: 
  Country: None (occurrence: None)
  Receive Date: 20051205
  Receipt Date: 20051122
  Transmission Date: 20060501
  Serious: Yes (Hospitalization, Other)
  Sender: FDA-Public Use
  Company Number: 2005160253

PATIENT
  Sex: Female
  Weight: 80.7403 kg

DRUGS (2)
  1. ZYRTEC-D 12 HOUR [Suspect]
     Indication: HEADACHE
     Dosage: 5MG/120MG (1 IN 1 D)
     Dates: start: 20020814
  2. SUDAFED (PSEUDOEPHEDRINE) [Suspect]
     Indication: SINUS DISORDER

REACTIONS (5)
  - AMPHETAMINES POSITIVE [None]
  - CEREBROVASCULAR ACCIDENT [None]
  - HYPERTENSION [None]
  - STRESS [None]
  - TOXICOLOGIC TEST ABNORMAL [None]
